FAERS Safety Report 7619545-6 (Version None)
Quarter: 2011Q3

REPORT INFORMATION
  Report Type: 
  Country: None (occurrence: None)
  Receive Date: 20110719
  Receipt Date: 20110707
  Transmission Date: 20111222
  Serious: Yes (Other)
  Sender: FDA-Public Use
  Company Number: DE-JNJFOC-20110612535

PATIENT
  Age: 56 Year
  Sex: Male

DRUGS (10)
  1. BUPRENORPHINE [Concomitant]
  2. METHOTREXATE [Concomitant]
     Dates: start: 20091101, end: 20091201
  3. GOLIMUMAB [Suspect]
     Indication: PSORIATIC ARTHROPATHY
     Route: 058
     Dates: start: 20110324, end: 20110526
  4. FOLIC ACID [Concomitant]
     Dates: start: 20100201, end: 20110101
  5. ARCOXIA [Concomitant]
     Dates: start: 20100201
  6. METHOTREXATE [Concomitant]
     Dates: start: 20100201, end: 20110101
  7. PREDNISOLONE [Concomitant]
     Dates: start: 20091201
  8. PREDNISOLONE [Concomitant]
     Dates: start: 20110501
  9. TRAMADOL HCL [Concomitant]
     Dates: start: 20090301
  10. FOLIC ACID [Concomitant]
     Dates: start: 20091101, end: 20091201

REACTIONS (1)
  - GAMMA-GLUTAMYLTRANSFERASE INCREASED [None]
